FAERS Safety Report 6924034-8 (Version None)
Quarter: 2010Q3

REPORT INFORMATION
  Report Type: 
  Country: None (occurrence: None)
  Receive Date: 20100813
  Receipt Date: 20100803
  Transmission Date: 20110219
  Serious: Yes (Hospitalization)
  Sender: FDA-Public Use
  Company Number: CH-ABBOTT-10P-151-0661455-00

PATIENT
  Age: 57 Year
  Sex: Male

DRUGS (6)
  1. DEPAKENE [Suspect]
     Indication: PRODUCT USED FOR UNKNOWN INDICATION
     Route: 048
     Dates: end: 20100101
  2. DEPAKENE [Suspect]
     Route: 048
     Dates: start: 20100101
  3. ANXIOLIT [Concomitant]
     Indication: PRODUCT USED FOR UNKNOWN INDICATION
  4. SOMNIUM [Concomitant]
     Indication: PRODUCT USED FOR UNKNOWN INDICATION
  5. CLOMETHIAZOLE [Concomitant]
     Indication: PRODUCT USED FOR UNKNOWN INDICATION
  6. AMITRIPTYLINE HCL [Concomitant]
     Indication: PRODUCT USED FOR UNKNOWN INDICATION

REACTIONS (3)
  - ANTICONVULSANT DRUG LEVEL BELOW THERAPEUTIC [None]
  - EPILEPSY [None]
  - INAPPROPRIATE SCHEDULE OF DRUG ADMINISTRATION [None]
